FAERS Safety Report 9448137 (Version 2)
Quarter: 2013Q4

REPORT INFORMATION
  Report Type: Spontaneous
  Country: TR (occurrence: TR)
  Receive Date: 20130808
  Receipt Date: 20131031
  Transmission Date: 20140711
  Serious: Yes (Hospitalization, Other)
  Sender: FDA-Public Use
  Company Number: TR-AMGEN-TURSP2013055336

PATIENT
  Age: 47 Year
  Sex: Male

DRUGS (2)
  1. ENBREL [Suspect]
     Indication: ANKYLOSING SPONDYLITIS
     Dosage: 50 MG, CYCLIC; PER 10 DAYS
     Route: 058
     Dates: start: 2011, end: 20130720
  2. ARAVA [Concomitant]
     Indication: ANKYLOSING SPONDYLITIS
     Dosage: 100 MG, 1X/DAY
     Route: 048

REACTIONS (8)
  - Road traffic accident [Recovered/Resolved]
  - Brain injury [Not Recovered/Not Resolved]
  - Loss of consciousness [Not Recovered/Not Resolved]
  - Lower limb fracture [Recovered/Resolved]
  - Hypertension [Not Recovered/Not Resolved]
  - Wound [Not Recovered/Not Resolved]
  - Contusion [Not Recovered/Not Resolved]
  - Walking disability [Not Recovered/Not Resolved]
